FAERS Safety Report 9315351 (Version 2)
Quarter: 2013Q4

REPORT INFORMATION
  Report Type: Spontaneous
  Country: US (occurrence: US)
  Receive Date: 20130529
  Receipt Date: 20131127
  Transmission Date: 20140711
  Serious: Yes (Death, Hospitalization)
  Sender: FDA-Public Use
  Company Number: US-B.I. PHARMACEUTICALS,INC./RIDGEFIELD-2013-BI-14732BP

PATIENT
  Age: 67 Year
  Sex: Female
  Weight: 72.58 kg

DRUGS (27)
  1. PRADAXA [Suspect]
     Indication: ATRIAL FIBRILLATION
     Dosage: 300 MG
     Route: 048
     Dates: start: 20110920, end: 20120522
  2. SULFAMETHOXAZOLE [Concomitant]
     Route: 048
  3. PLAVIX [Concomitant]
     Indication: CARDIAC DISORDER
     Route: 048
  4. PLAVIX [Concomitant]
     Indication: CORONARY ARTERY DISEASE
  5. OMEPRAZOLE SODIUM BICARBONATE [Concomitant]
     Route: 048
  6. AMIODARONE [Concomitant]
     Indication: CARDIOVERSION
     Dosage: 200 MG
     Route: 048
  7. SEROQUEL [Concomitant]
     Indication: SLEEP DISORDER
     Route: 048
  8. SEROQUEL [Concomitant]
     Indication: ANXIETY
  9. SEROQUEL [Concomitant]
     Indication: ANXIETY DISORDER
  10. LISINOPRIL [Concomitant]
     Indication: CORONARY ARTERY DISEASE
     Dosage: 10 MG
     Route: 048
  11. LISINOPRIL [Concomitant]
     Indication: HYPERTENSION
  12. DILTIAZEM CD [Concomitant]
     Indication: CORONARY ARTERY DISEASE
     Dosage: 240 MG
     Route: 048
  13. DILTIAZEM CD [Concomitant]
     Indication: HYPERTENSION
  14. LOVASTATIN [Concomitant]
     Dosage: 40 MG
     Route: 048
  15. XANAX [Concomitant]
     Indication: GENERALISED ANXIETY DISORDER
     Dosage: 3 MG
     Route: 048
  16. ONDANSETRON [Concomitant]
     Indication: NAUSEA
     Dosage: 16 MG
     Route: 048
  17. OMEGA-3 FATTY ACIDS-VITAMIN E [Concomitant]
     Dosage: 2000 MG
     Route: 048
  18. CYMBALTA [Concomitant]
     Indication: GENERALISED ANXIETY DISORDER
     Dosage: 60 MG
     Route: 048
  19. ASPIRIN [Concomitant]
     Dosage: 81 MG
     Route: 048
  20. MULTIVITAMIN [Concomitant]
     Route: 048
  21. MICROZIDE [Concomitant]
     Indication: GRAVITATIONAL OEDEMA
     Dosage: 25 MG
     Route: 048
  22. MICROZIDE [Concomitant]
     Indication: HYPERTENSION
  23. VICODIN [Concomitant]
     Indication: PAIN
     Route: 048
  24. PRAVACHOL [Concomitant]
     Indication: CORONARY ARTERY DISEASE
     Dosage: 20 MG
     Route: 048
  25. PREVACID [Concomitant]
     Dosage: 60 MG
     Route: 048
  26. DESYREL [Concomitant]
     Dosage: 60 MG
     Route: 048
  27. POTASSIUM CHLORIDE [Concomitant]
     Dosage: 20 MEQ
     Route: 048

REACTIONS (6)
  - Cerebral haemorrhage [Fatal]
  - Haematoma [Unknown]
  - Fall [Unknown]
  - Contusion [Unknown]
  - Haematoma [Unknown]
  - Vaginal haemorrhage [Recovered/Resolved]
